FAERS Safety Report 6404581-8 (Version None)
Quarter: 2009Q4

REPORT INFORMATION
  Report Type: 
  Country: None (occurrence: None)
  Receive Date: 20091016
  Receipt Date: 20091007
  Transmission Date: 20100525
  Serious: Yes (Other)
  Sender: FDA-Public Use
  Company Number: CA-ELI_LILLY_AND_COMPANY-CA200910001636

PATIENT
  Age: 76 Year
  Sex: Male

DRUGS (4)
  1. FORTEO [Suspect]
     Indication: OSTEOPOROSIS
     Dosage: 20 UG, DAILY (1/D)
     Route: 058
     Dates: start: 20080428
  2. CALCIUM [Concomitant]
  3. VITAMIN D [Concomitant]
  4. ASAPHEN [Concomitant]

REACTIONS (1)
  - AORTIC ANEURYSM [None]
